FAERS Safety Report 4330815-X (Version None)
Quarter: 2004Q1

REPORT INFORMATION
  Report Type: 
  Country: None (occurrence: None)
  Receive Date: 20040331
  Receipt Date: 20040311
  Transmission Date: 20041129
  Serious: Yes (Other)
  Sender: FDA-Public Use
  Company Number: US_0403101423

PATIENT
  Age: 56 Year
  Sex: Female
  Weight: 102 kg

DRUGS (7)
  1. HUMALOG [Suspect]
  2. EFFEXOR XR [Concomitant]
  3. PREMARIN [Concomitant]
  4. LEVOTHYROXINE SODIUM [Concomitant]
  5. LIPITOR [Concomitant]
  6. ASPIRIN [Concomitant]
  7. LANTUS [Concomitant]

REACTIONS (5)
  - BENIGN OVARIAN TUMOUR [None]
  - BLOOD GLUCOSE INCREASED [None]
  - CARPAL TUNNEL SYNDROME [None]
  - FEELING ABNORMAL [None]
  - FIBROMYALGIA [None]
